FAERS Safety Report 4993627-X (Version None)
Quarter: 2006Q2

REPORT INFORMATION
  Report Type: 
  Country: None (occurrence: None)
  Receive Date: 20060504
  Receipt Date: 20060504
  Transmission Date: 20061013
  Serious: Yes (Life-Threatening, Disabling)
  Sender: FDA-Public Use
  Company Number: None

PATIENT
  Age: 54 Year
  Sex: Female
  Weight: 172.3669 kg

DRUGS (4)
  1. CIPROFLOXACIN [Suspect]
     Indication: ASTHMA
     Dosage: 500 MG BID PO
     Route: 048
     Dates: start: 20060413
  2. CIPROFLOXACIN [Suspect]
     Indication: BRONCHITIS
     Dosage: 500 MG BID PO
     Route: 048
     Dates: start: 20060413
  3. CIPROFLOXACIN [Suspect]
     Indication: ASTHMA
     Dosage: 500 MG BID PO
     Route: 048
     Dates: start: 20060414
  4. CIPROFLOXACIN [Suspect]
     Indication: BRONCHITIS
     Dosage: 500 MG BID PO
     Route: 048
     Dates: start: 20060414

REACTIONS (9)
  - COUGH [None]
  - DRUG INEFFECTIVE [None]
  - DRUG TOXICITY [None]
  - HEADACHE [None]
  - HEPATIC PAIN [None]
  - LIVER DISORDER [None]
  - NAUSEA [None]
  - PAIN [None]
  - SWELLING [None]
